FAERS Safety Report 5488690-6 (Version None)
Quarter: 2007Q4

REPORT INFORMATION
  Report Type: 
  Country: None (occurrence: None)
  Receive Date: 20071017
  Receipt Date: 20071005
  Transmission Date: 20080405
  Serious: Yes (Other)
  Sender: FDA-Public Use
  Company Number: US-PFIZER INC-2007085116

PATIENT
  Sex: Male
  Weight: 86.363 kg

DRUGS (4)
  1. CHANTIX [Suspect]
     Indication: SMOKING CESSATION THERAPY
     Dates: start: 20070901, end: 20070901
  2. DRUG, UNSPECIFIED [Concomitant]
     Indication: ANTIINFLAMMATORY THERAPY
  3. HYDROCODONE [Concomitant]
     Indication: BACK DISORDER
  4. LORAZEPAM [Concomitant]
     Indication: ANXIETY

REACTIONS (3)
  - ANXIETY [None]
  - HEADACHE [None]
  - NIGHTMARE [None]
